FAERS Safety Report 10030334 (Version 2)
Quarter: 2014Q1

REPORT INFORMATION
  Report Type: Spontaneous
  Country: US (occurrence: US)
  Receive Date: 20140323
  Receipt Date: 20140323
  Transmission Date: 20141002
  Serious: No
  Sender: FDA-Public Use
  Company Number: US-ALLERGAN-1307673US

PATIENT
  Sex: Female

DRUGS (4)
  1. LATISSE 0.03% [Suspect]
     Indication: GROWTH OF EYELASHES
     Dosage: UNK UNK, QHS
     Route: 061
  2. CALCIUM [Concomitant]
     Indication: SUPPLEMENTATION THERAPY
  3. BIRTH CONTROL PILL NOS [Concomitant]
     Indication: CONTRACEPTION
  4. MULTIVITAMIN                       /00097801/ [Concomitant]

REACTIONS (1)
  - Blepharal pigmentation [Not Recovered/Not Resolved]
